FAERS Safety Report 7121746-0 (Version None)
Quarter: 2010Q4

REPORT INFORMATION
  Report Type: 
  Country: None (occurrence: None)
  Receive Date: 20101124
  Receipt Date: 20101116
  Transmission Date: 20110411
  Serious: Yes (Other)
  Sender: FDA-Public Use
  Company Number: KR-ROCHE-661851

PATIENT
  Sex: Male
  Weight: 70.1 kg

DRUGS (15)
  1. MYCOPHENOLATE MOFETIL [Suspect]
     Route: 048
     Dates: start: 20091014
  2. MYCOPHENOLATE MOFETIL [Suspect]
     Route: 048
     Dates: start: 20100119, end: 20100122
  3. MYCOPHENOLATE MOFETIL [Suspect]
     Route: 048
     Dates: start: 20100122
  4. CYCLOSPORINE [Suspect]
     Route: 048
     Dates: start: 20100106
  5. CYCLOSPORINE [Suspect]
     Route: 048
     Dates: start: 20100119, end: 20100126
  6. CYCLOSPORINE [Suspect]
     Route: 048
     Dates: start: 20100127
  7. PREDNISOLONE [Concomitant]
     Dates: start: 20091014
  8. PREDNISOLONE [Concomitant]
     Dates: start: 20100119, end: 20100122
  9. PREDNISOLONE [Concomitant]
     Dates: start: 20100123, end: 20100126
  10. PREDNISOLONE [Concomitant]
     Dates: start: 20100127, end: 20100209
  11. PREDNISOLONE [Concomitant]
     Dates: start: 20100210
  12. PRITOR [Concomitant]
     Dates: start: 20090303
  13. BENZBROMARONE [Concomitant]
     Dates: start: 20090310
  14. HEXAMIDINE [Concomitant]
     Dates: start: 20090110
  15. PETHIDINE [Concomitant]
     Dates: start: 20100106, end: 20100106

REACTIONS (1)
  - KIDNEY TRANSPLANT REJECTION [None]
